FAERS Safety Report 17856223 (Version 6)
Quarter: 2020Q4

REPORT INFORMATION
  Report Type: Report from Study
  Country: CO (occurrence: CO)
  Receive Date: 20200603
  Receipt Date: 20201209
  Transmission Date: 20210113
  Serious: Yes (Hospitalization)
  Sender: FDA-Public Use
  Company Number: CO-JNJFOC-20200535354

PATIENT
  Age: 54 Year
  Sex: Male
  Weight: 74 kg

DRUGS (8)
  1. STELARA [Suspect]
     Active Substance: USTEKINUMAB
  2. ATORVASTATIN [Concomitant]
     Active Substance: ATORVASTATIN
  3. AMLODIPINE [Concomitant]
     Active Substance: AMLODIPINE BESYLATE
  4. TRAMADOL. [Concomitant]
     Active Substance: TRAMADOL
  5. LOSARTAN. [Concomitant]
     Active Substance: LOSARTAN
  6. BETAMETHASONE. [Concomitant]
     Active Substance: BETAMETHASONE
  7. INSULIN [Concomitant]
     Active Substance: INSULIN NOS
  8. STELARA [Suspect]
     Active Substance: USTEKINUMAB
     Indication: PSORIASIS
     Dosage: 45 MG/0.5 ML
     Route: 058
     Dates: start: 20200307

REACTIONS (5)
  - Blood glucose increased [Unknown]
  - Psoriasis [Not Recovered/Not Resolved]
  - Cerebral thrombosis [Not Recovered/Not Resolved]
  - Blood pressure diastolic increased [Unknown]
  - Drug ineffective [Unknown]

NARRATIVE: CASE EVENT DATE: 2020
